FAERS Safety Report 10480602 (Version 1)
Quarter: 2014Q3

REPORT INFORMATION
  Report Type: Spontaneous
  Country: US (occurrence: None)
  Receive Date: 20140926
  Receipt Date: 20140926
  Transmission Date: 20150326
  Serious: No
  Sender: FDA-Public Use
  Company Number: None

PATIENT
  Sex: Female

DRUGS (7)
  1. SOVALDI [Suspect]
     Active Substance: SOFOSBUVIR
     Indication: HEPATITIS C
     Route: 048
     Dates: start: 20140904
  2. OLYSIO [Suspect]
     Active Substance: SIMEPREVIR
     Indication: HEPATITIS C
     Route: 048
     Dates: start: 20140904
  3. SOMA [Concomitant]
     Active Substance: CARISOPRODOL
  4. ADDERALL XR CAP [Concomitant]
  5. RIBAVIRIN. [Concomitant]
     Active Substance: RIBAVIRIN
  6. OXYMORPHONE [Concomitant]
     Active Substance: OXYMORPHONE
  7. SOVALDI [Concomitant]
     Active Substance: SOFOSBUVIR

REACTIONS (3)
  - Fatigue [None]
  - Mental disorder [None]
  - Asthenia [None]
